FAERS Safety Report 8542960-3 (Version None)
Quarter: 2012Q3

REPORT INFORMATION
  Report Type: 
  Country: None (occurrence: None)
  Receive Date: 20120727
  Receipt Date: 20120723
  Transmission Date: 20120928
  Serious: Yes (Other)
  Sender: FDA-Public Use
  Company Number: US-PFIZER INC-2012177884

PATIENT
  Sex: Female

DRUGS (1)
  1. XALKORI [Suspect]
     Indication: COLON CANCER
     Dosage: 250 MG, 2X/DAY (BID)
     Route: 048
     Dates: start: 20120216

REACTIONS (5)
  - OEDEMA PERIPHERAL [None]
  - CONSTIPATION [None]
  - NAUSEA [None]
  - VISION BLURRED [None]
  - VOMITING [None]
